FAERS Safety Report 23532626 (Version 1)
Quarter: 2024Q1

REPORT INFORMATION
  Report Type: Spontaneous
  Country: CA (occurrence: CA)
  Receive Date: 20240216
  Receipt Date: 20240216
  Transmission Date: 20240410
  Serious: Yes (Other)
  Sender: FDA-Public Use
  Company Number: CA-PFIZER INC-202400041504

PATIENT
  Sex: Female

DRUGS (10)
  1. METHOTREXATE SODIUM [Suspect]
     Active Substance: METHOTREXATE SODIUM
     Dosage: 2.5 MG
     Route: 065
  2. BUDESONIDE\FORMOTEROL FUMARATE [Suspect]
     Active Substance: BUDESONIDE\FORMOTEROL FUMARATE
     Dosage: UNK, 2X/DAY
     Route: 065
  3. CANDESARTAN [Suspect]
     Active Substance: CANDESARTAN
     Dosage: 16 MG, 1X/DAY
     Route: 065
  4. FLUTICASONE [Suspect]
     Active Substance: FLUTICASONE
     Dosage: 27.5 UG, 1X/DAY
     Route: 065
  5. FOLIC ACID [Suspect]
     Active Substance: FOLIC ACID
     Dosage: 5.0 MG, 1X/DAY
     Route: 065
  6. ESOMEPRAZOLE. [Suspect]
     Active Substance: ESOMEPRAZOLE MAGNESIUM
     Dosage: 40.0 MG, 2X/DAY
     Route: 065
  7. ROSUVASTATIN CALCIUM [Suspect]
     Active Substance: ROSUVASTATIN CALCIUM
     Dosage: 5.0 MG, 1X/DAY
     Route: 065
  8. VENLAFAXINE HYDROCHLORIDE [Suspect]
     Active Substance: VENLAFAXINE HYDROCHLORIDE
     Dosage: 37.5 MG, 1X/DAY
     Route: 065
  9. VENLAFAXINE HYDROCHLORIDE [Suspect]
     Active Substance: VENLAFAXINE HYDROCHLORIDE
     Dosage: 75.0 MG, 1X/DAY
     Route: 065
  10. TIOTROPIUM [Suspect]
     Active Substance: TIOTROPIUM
     Dosage: 2.5 UG
     Route: 065

REACTIONS (8)
  - Chronic sinusitis [Unknown]
  - Dyslipidaemia [Unknown]
  - Myalgia [Unknown]
  - Neurosarcoidosis [Unknown]
  - Obstructive sleep apnoea syndrome [Unknown]
  - Pulmonary sarcoidosis [Unknown]
  - Sarcoidosis [Unknown]
  - Thyroid mass [Unknown]
